FAERS Safety Report 12199264 (Version 1)
Quarter: 2016Q1

REPORT INFORMATION
  Report Type: Spontaneous
  Country: US (occurrence: US)
  Receive Date: 20160322
  Receipt Date: 20160322
  Transmission Date: 20160526
  Serious: No
  Sender: FDA-Public Use
  Company Number: US-PFIZER INC-2016127666

PATIENT
  Sex: Male

DRUGS (1)
  1. CHANTIX [Suspect]
     Active Substance: VARENICLINE TARTRATE
     Dosage: USED BEGINNERS PACKET AND DIDN^T REMEMBER DOSAGE
     Dates: start: 201601, end: 201602

REACTIONS (1)
  - Genital infection fungal [Not Recovered/Not Resolved]

NARRATIVE: CASE EVENT DATE: 201602
